FAERS Safety Report 19703696 (Version 1)
Quarter: 2021Q3

REPORT INFORMATION
  Report Type: Spontaneous
  Country: CA (occurrence: CA)
  Receive Date: 20210813
  Receipt Date: 20210813
  Transmission Date: 20211014
  Serious: Yes (Disabling)
  Sender: FDA-Public Use
  Company Number: None

PATIENT
  Age: 42 Year
  Sex: Female
  Weight: 63.5 kg

DRUGS (11)
  1. ENTYVIO [Suspect]
     Active Substance: VEDOLIZUMAB
     Indication: COLITIS
     Dosage: ?          QUANTITY:1 DF DOSAGE FORM;?
     Route: 042
     Dates: start: 20191204
  2. VITAMIN D [Concomitant]
     Active Substance: VITAMIN D NOS
  3. TARO MEMETASONE 0.1% [Concomitant]
  4. PRO VALACYCLOVIR [Concomitant]
  5. ENTYVIO [Suspect]
     Active Substance: VEDOLIZUMAB
     Indication: COLITIS ULCERATIVE
     Dosage: ?          QUANTITY:1 DF DOSAGE FORM;?
     Route: 042
     Dates: start: 20191204
  6. PFIZER?BIONTECH COVID?19 VACCINE [Suspect]
     Active Substance: TOZINAMERAN
  7. MEZAVANT [Concomitant]
     Active Substance: MESALAMINE
  8. CONCERTA [Concomitant]
     Active Substance: METHYLPHENIDATE HYDROCHLORIDE
  9. MCAL [Concomitant]
  10. FLOVENT [Concomitant]
     Active Substance: FLUTICASONE PROPIONATE
  11. SLABUTAMOL [Concomitant]

REACTIONS (10)
  - Vaccination complication [None]
  - Palpitations [None]
  - Drug interaction [None]
  - Loss of therapeutic response [None]
  - Chest pain [None]
  - Blood pressure increased [None]
  - COVID-19 immunisation [None]
  - Heart rate increased [None]
  - Nausea [None]
  - Flushing [None]

NARRATIVE: CASE EVENT DATE: 20210805
